FAERS Safety Report 12550269 (Version 2)
Quarter: 2016Q3

REPORT INFORMATION
  Report Type: Spontaneous
  Country: CN (occurrence: CN)
  Receive Date: 20160712
  Receipt Date: 20160720
  Transmission Date: 20161109
  Serious: Yes (Congenital Anomaly, Other)
  Sender: FDA-Public Use
  Company Number: PHHY2016CN093533

PATIENT
  Sex: Male

DRUGS (4)
  1. ORYZANOL [Suspect]
     Active Substance: GAMMA ORYZANOL
     Indication: EXPOSURE VIA FATHER
     Dosage: FETAL DRUG EXPOSURE VIA FATHER
     Route: 050
  2. CARBAMAZEPINE. [Suspect]
     Active Substance: CARBAMAZEPINE
     Indication: EXPOSURE VIA FATHER
     Dosage: FETAL DRUG EXPOSURE VIA FATHER
     Route: 050
  3. TEGRETOL [Suspect]
     Active Substance: CARBAMAZEPINE
     Indication: EXPOSURE VIA FATHER
     Dosage: FETAL DRUG EXPOSURE VIA FATHER
     Route: 050
  4. SODIUM BENZOATE [Suspect]
     Active Substance: SODIUM BENZOATE
     Indication: EXPOSURE VIA FATHER
     Dosage: FETAL DRUG EXPOSURE VIA FATHER
     Route: 050

REACTIONS (4)
  - Congenital joint malformation [Unknown]
  - Skull malformation [Unknown]
  - Hernia [Unknown]
  - Exposure via father [Unknown]
